FAERS Safety Report 6071948-X (Version None)
Quarter: 2009Q1

REPORT INFORMATION
  Report Type: 
  Country: None (occurrence: None)
  Receive Date: 20090205
  Receipt Date: 20090205
  Transmission Date: 20090719
  Serious: Yes (Other)
  Sender: FDA-Public Use
  Company Number: None

PATIENT
  Age: 60 Year
  Sex: Female

DRUGS (1)
  1. HUMIRA [Suspect]
     Indication: RHEUMATOID ARTHRITIS
     Dosage: 40MG EVERY OTHER WEEK SQ
     Dates: start: 20080624, end: 20090203

REACTIONS (6)
  - BLOOD BLISTER [None]
  - DYSPNOEA [None]
  - NONSPECIFIC REACTION [None]
  - RASH GENERALISED [None]
  - SWOLLEN TONGUE [None]
  - URTICARIA [None]
